FAERS Safety Report 7366178-5 (Version None)
Quarter: 2011Q1

REPORT INFORMATION
  Report Type: 
  Country: None (occurrence: None)
  Receive Date: 20110225
  Receipt Date: 20101229
  Transmission Date: 20110831
  Serious: No
  Sender: FDA-Public Use
  Company Number: 320791

PATIENT
  Age: 68 Year
  Sex: Male

DRUGS (2)
  1. CIALIS [Concomitant]
  2. VICTOZA [Suspect]
     Indication: TYPE 2 DIABETES MELLITUS

REACTIONS (4)
  - ERECTILE DYSFUNCTION [None]
  - WEIGHT DECREASED [None]
  - DRUG INEFFECTIVE [None]
  - DECREASED APPETITE [None]
